FAERS Safety Report 18196241 (Version 1)
Quarter: 2020Q3

REPORT INFORMATION
  Report Type: Spontaneous
  Country: IT (occurrence: IT)
  Receive Date: 20200826
  Receipt Date: 20200826
  Transmission Date: 20201103
  Serious: Yes (Other)
  Sender: FDA-Public Use
  Company Number: IT-AUROBINDO-AUR-APL-2020-044616

PATIENT
  Age: 52 Year
  Sex: Female

DRUGS (2)
  1. IBUPROFEN FILM?COATED TABLETS [Suspect]
     Active Substance: IBUPROFEN
     Indication: ANTIINFLAMMATORY THERAPY
     Dosage: UNK
     Route: 048
  2. NIMESULIDE [Suspect]
     Active Substance: NIMESULIDE
     Indication: ANTIINFLAMMATORY THERAPY
     Dosage: UNK
     Route: 048

REACTIONS (1)
  - Abdominal pain upper [Unknown]

NARRATIVE: CASE EVENT DATE: 20200718
